FAERS Safety Report 5584599-8 (Version None)
Quarter: 2008Q1

REPORT INFORMATION
  Report Type: 
  Country: None (occurrence: None)
  Receive Date: 20080108
  Receipt Date: 20071220
  Transmission Date: 20080703
  Serious: Yes (Other)
  Sender: FDA-Public Use
  Company Number: US-GENENTECH-253798

PATIENT
  Age: 38 Year
  Sex: Female

DRUGS (2)
  1. EFALIZUMAB [Suspect]
     Indication: SWEAT GLAND INFECTION
     Dosage: 0.7 MG/K/W, X2
     Route: 058
  2. EFALIZUMAB [Suspect]
     Dosage: 1 MG/K/W, 1/WEEK
     Route: 058

REACTIONS (3)
  - BREAST CANCER [None]
  - DRUG INEFFECTIVE [None]
  - PYREXIA [None]
